FAERS Safety Report 4426522-5 (Version None)
Quarter: 2004Q3

REPORT INFORMATION
  Report Type: 
  Country: None (occurrence: None)
  Receive Date: 20040816
  Receipt Date: 20011212
  Transmission Date: 20050211
  Serious: Yes (Hospitalization)
  Sender: FDA-Public Use
  Company Number: PHEH2001US10152

PATIENT
  Age: 44 Year
  Sex: Female
  Weight: 64 kg

DRUGS (3)
  1. TEGASEROD VS PLACEBO [Suspect]
     Indication: CONSTIPATION
     Dosage: 2 MG, BID
     Route: 048
     Dates: start: 20011023, end: 20011202
  2. TEGASEROD VS PLACEBO [Suspect]
     Dosage: UNK, NO TREATMENT
     Dates: start: 20011203, end: 20011204
  3. TEGASEROD VS PLACEBO [Suspect]
     Route: 048
     Dates: start: 20011205

REACTIONS (2)
  - MENORRHAGIA [None]
  - VAGINAL HYSTERECTOMY [None]
